FAERS Safety Report 21772874 (Version 2)
Quarter: 2023Q1

REPORT INFORMATION
  Report Type: Spontaneous
  Country: US (occurrence: US)
  Receive Date: 20221223
  Receipt Date: 20230126
  Transmission Date: 20230417
  Serious: Yes (Death, Hospitalization)
  Sender: FDA-Public Use
  Company Number: US-ALKERMES INC.-ALK-2022-006092

PATIENT
  Age: 38 Year
  Sex: Female
  Weight: 72 kg

DRUGS (6)
  1. VIVITROL [Suspect]
     Active Substance: NALTREXONE
     Indication: Alcoholism
     Dosage: 380 MILLIGRAM, Q28D
     Route: 030
     Dates: start: 20221028
  2. NALTREXONE [Concomitant]
     Active Substance: NALTREXONE
     Indication: Alcohol use disorder
     Dosage: 50 MILLIGRAM, QD
     Route: 048
     Dates: start: 20220909, end: 20221027
  3. TOPIRAMATE [Concomitant]
     Active Substance: TOPIRAMATE
     Indication: Alcohol use disorder
     Dosage: 100 MILLIGRAM, QD
     Route: 048
     Dates: start: 20220909
  4. LEVONORGESTREL [Concomitant]
     Active Substance: LEVONORGESTREL
     Indication: Contraception
     Dosage: 20MCG/24HR
     Route: 015
     Dates: start: 20221028
  5. GABAPENTIN [Concomitant]
     Active Substance: GABAPENTIN
     Indication: Alcohol use disorder
     Dosage: 300 MILLIGRAM
     Route: 048
     Dates: start: 20221108
  6. ESCITALOPRAM [Concomitant]
     Active Substance: ESCITALOPRAM OXALATE
     Indication: Depression
     Dosage: 10 MILLIGRAM
     Route: 048
     Dates: start: 20220527

REACTIONS (2)
  - Overdose [Fatal]
  - Alcohol poisoning [None]

NARRATIVE: CASE EVENT DATE: 20221103
